FAERS Safety Report 6844571-4 (Version None)
Quarter: 2010Q3

REPORT INFORMATION
  Report Type: 
  Country: None (occurrence: None)
  Receive Date: 20100715
  Receipt Date: 20100702
  Transmission Date: 20110219
  Serious: Yes (Death, Other)
  Sender: FDA-Public Use
  Company Number: DE-CUBIST-2010S1000740

PATIENT
  Age: 65 Year
  Sex: Male
  Weight: 93 kg

DRUGS (5)
  1. CUBICIN [Suspect]
     Indication: INFECTION
     Route: 042
     Dates: start: 20100123, end: 20100215
  2. CUBICIN [Suspect]
     Route: 042
     Dates: start: 20100123, end: 20100215
  3. CICLOSPORIN [Concomitant]
     Indication: PRODUCT USED FOR UNKNOWN INDICATION
     Dates: start: 20091108, end: 20100215
  4. AMPHOTERICIN B [Concomitant]
     Indication: PRODUCT USED FOR UNKNOWN INDICATION
     Dates: start: 20100127, end: 20100210
  5. MEROPENEM [Concomitant]
     Dates: start: 20100131, end: 20100211

REACTIONS (3)
  - EPSTEIN-BARR VIRUS INFECTION [None]
  - HYPOTHALAMO-PITUITARY DISORDER [None]
  - TRANSPLANT FAILURE [None]
